FAERS Safety Report 6109239-0 (Version None)
Quarter: 2009Q1

REPORT INFORMATION
  Report Type: 
  Country: None (occurrence: None)
  Receive Date: 20090306
  Receipt Date: 20090220
  Transmission Date: 20090719
  Serious: Yes (Other)
  Sender: FDA-Public Use
  Company Number: A-US2009-24161

PATIENT
  Age: 7 Year
  Sex: Female

DRUGS (3)
  1. TRACLEER [Suspect]
     Indication: DRUG USE FOR UNKNOWN INDICATION
     Dosage: MG, ORAL
     Route: 048
     Dates: start: 20010101
  2. COUMADIN [Concomitant]
  3. VIAGRA [Concomitant]

REACTIONS (3)
  - LEARNING DISABILITY [None]
  - MITRAL VALVE INCOMPETENCE [None]
  - MITRAL VALVE PROLAPSE [None]
